FAERS Safety Report 10753363 (Version 1)
Quarter: 2015Q1

REPORT INFORMATION
  Report Type: Spontaneous
  Country: RO (occurrence: None)
  Receive Date: 20150129
  Receipt Date: 20150129
  Transmission Date: 20150721
  Serious: Yes (Hospitalization, Other)
  Sender: FDA-Public Use
  Company Number: RO-ZYDUS-006446

PATIENT
  Age: 64 Year
  Sex: Male

DRUGS (9)
  1. BISEPTOL [Suspect]
     Active Substance: SULFAMETHOXAZOLE\TRIMETHOPRIM
     Indication: URINARY TRACT INFECTION
  2. NSAIDS [Suspect]
     Active Substance: UNSPECIFIED INGREDIENT
  3. MELOXICAM (MELOXICAM) [Suspect]
     Active Substance: MELOXICAM
  4. ALGOCALMIN [Suspect]
     Active Substance: METAMIZOLE SODIUM
  5. ANTINEVRALGIC [Suspect]
     Active Substance: ASPIRIN\CAFFEINE\PHENACETIN
  6. IBUPROFEN (IBUPROFEN) [Suspect]
     Active Substance: IBUPROFEN
  7. PIROXICAM. [Suspect]
     Active Substance: PIROXICAM
  8. CELECOXIB (CELECOXIB) [Suspect]
     Active Substance: CELECOXIB
  9. KETOROLAC (KETOROLAC) [Suspect]
     Active Substance: KETOROLAC TROMETHAMINE

REACTIONS (9)
  - Hyperuricaemia [None]
  - Drug interaction [None]
  - Hyponatraemia [None]
  - Oliguria [None]
  - Polyneuropathy [None]
  - Oedema peripheral [None]
  - Hypocalcaemia [None]
  - Gait disturbance [None]
  - Rhabdomyolysis [None]
